FAERS Safety Report 18427926 (Version 1)
Quarter: 2020Q4

REPORT INFORMATION
  Report Type: Spontaneous
  Country: US (occurrence: US)
  Receive Date: 20201026
  Receipt Date: 20201026
  Transmission Date: 20210114
  Serious: Yes (Other)
  Sender: FDA-Public Use
  Company Number: US-ABBVIE-20K-163-3265428-00

PATIENT
  Sex: Female

DRUGS (1)
  1. LUPRON [Suspect]
     Active Substance: LEUPROLIDE ACETATE
     Indication: ENDOMETRIOSIS
     Route: 065

REACTIONS (6)
  - Endometriosis [Unknown]
  - Arthralgia [Unknown]
  - Postmenopausal haemorrhage [Unknown]
  - Mood swings [Unknown]
  - Menopausal symptoms [Unknown]
  - Hot flush [Unknown]
